FAERS Safety Report 6848850-6 (Version None)
Quarter: 2010Q3

REPORT INFORMATION
  Report Type: 
  Country: None (occurrence: None)
  Receive Date: 20100716
  Receipt Date: 20100715
  Transmission Date: 20110219
  Serious: Yes (Life-Threatening, Hospitalization, Other)
  Sender: FDA-Public Use
  Company Number: FR-ROXANE LABORATORIES, INC.-2010-RO-00853RO

PATIENT
  Age: 40 Year
  Sex: Male

DRUGS (5)
  1. AZATHIOPRINE [Suspect]
     Indication: COLITIS ULCERATIVE
  2. CORTICOSTEROIDS [Suspect]
     Indication: COLITIS ULCERATIVE
  3. CORTICOSTEROIDS [Suspect]
  4. PENTASA [Suspect]
     Indication: COLITIS ULCERATIVE
  5. IMUREL [Suspect]
     Indication: COLITIS ULCERATIVE

REACTIONS (6)
  - ACUTE FEBRILE NEUTROPHILIC DERMATOSIS [None]
  - CARDIOTOXICITY [None]
  - CELLULITIS [None]
  - HAEMODYNAMIC INSTABILITY [None]
  - HYPERSENSITIVITY [None]
  - MULTI-ORGAN FAILURE [None]
